FAERS Safety Report 13144912 (Version 2)
Quarter: 2017Q1

REPORT INFORMATION
  Report Type: Spontaneous
  Country: FR (occurrence: FR)
  Receive Date: 20170124
  Receipt Date: 20170215
  Transmission Date: 20170428
  Serious: Yes (Hospitalization, Disabling, Other)
  Sender: FDA-Public Use
  Company Number: FR-ACORDA-ACO_132920_2017

PATIENT
  Age: 37 Year
  Sex: Female
  Weight: 93 kg

DRUGS (2)
  1. QUTENZA [Suspect]
     Active Substance: CAPSAICIN
     Indication: NEURALGIA
     Dosage: 1 PATCH EVERY 3 MONTHS
     Route: 061
     Dates: start: 20160203, end: 20160203
  2. QUTENZA [Suspect]
     Active Substance: CAPSAICIN
     Dosage: 1 PATCH EVERY 3 MONTHS
     Route: 061
     Dates: start: 20160506, end: 20160506

REACTIONS (3)
  - Application site pain [Not Recovered/Not Resolved]
  - Application site pain [Unknown]
  - Diabetes mellitus [Unknown]

NARRATIVE: CASE EVENT DATE: 20160506
